FAERS Safety Report 11842131 (Version 1)
Quarter: 2015Q4

REPORT INFORMATION
  Report Type: Spontaneous
  Country: US (occurrence: None)
  Receive Date: 20151216
  Receipt Date: 20151216
  Transmission Date: 20160305
  Serious: No
  Sender: FDA-Public Use
  Company Number: None

PATIENT
  Age: 54 Year
  Sex: Female
  Weight: 65.77 kg

DRUGS (3)
  1. TYLENOL [Concomitant]
     Active Substance: ACETAMINOPHEN
  2. TAGAMET [Suspect]
     Active Substance: CIMETIDINE
     Indication: GASTROOESOPHAGEAL REFLUX DISEASE
     Dosage: 1 TABLET
     Route: 048
     Dates: start: 20151204, end: 20151204
  3. PSUDOEFEDRINE [Concomitant]

REACTIONS (25)
  - Pain in extremity [None]
  - Dehydration [None]
  - Peripheral coldness [None]
  - Diarrhoea [None]
  - Restlessness [None]
  - Renal pain [None]
  - Abdominal pain [None]
  - Dizziness [None]
  - Product tampering [None]
  - Asthenia [None]
  - Headache [None]
  - Muscular weakness [None]
  - Chills [None]
  - Pain [None]
  - Hyperhidrosis [None]
  - No reaction on previous exposure to drug [None]
  - Nausea [None]
  - Heart rate increased [None]
  - Presyncope [None]
  - Malaise [None]
  - Vomiting [None]
  - Blood pressure increased [None]
  - Muscle spasms [None]
  - Glossodynia [None]
  - Palpitations [None]

NARRATIVE: CASE EVENT DATE: 20151204
